FAERS Safety Report 6886820-2 (Version None)
Quarter: 2010Q3

REPORT INFORMATION
  Report Type: 
  Country: None (occurrence: None)
  Receive Date: 20100730
  Receipt Date: 20100720
  Transmission Date: 20110219
  Serious: Yes (Other)
  Sender: FDA-Public Use
  Company Number: US-PFIZER INC-2010091393

PATIENT
  Sex: Female
  Weight: 108.84 kg

DRUGS (5)
  1. GEODON [Suspect]
     Indication: DEPRESSION
     Dosage: 80 MG, 1X/DAY
     Route: 048
     Dates: start: 20100101, end: 20100101
  2. GEODON [Suspect]
     Indication: SCHIZOPHRENIA
     Dosage: 160 MG, 1X/DAY
     Route: 048
     Dates: start: 20100101, end: 20100101
  3. GEODON [Suspect]
     Dosage: 240 MG, 1X/DAY
     Route: 048
     Dates: start: 20100101
  4. LIPITOR [Suspect]
     Indication: BLOOD CHOLESTEROL INCREASED
     Dosage: 10 MG, 1X/DAY
     Route: 048
  5. LEXAPRO [Concomitant]
     Dosage: 40 MG, 1X/DAY

REACTIONS (5)
  - GAIT DISTURBANCE [None]
  - HYPOTENSION [None]
  - POLLAKIURIA [None]
  - STARING [None]
  - TREMOR [None]
